FAERS Safety Report 7130847-2 (Version None)
Quarter: 2010Q4

REPORT INFORMATION
  Report Type: 
  Country: None (occurrence: None)
  Receive Date: 20101201
  Receipt Date: 20101125
  Transmission Date: 20110411
  Serious: Yes (Hospitalization)
  Sender: FDA-Public Use
  Company Number: PHHO2010FR12862

PATIENT
  Sex: Female
  Weight: 56 kg

DRUGS (10)
  1. NEORAL [Suspect]
     Indication: RENAL TRANSPLANT
     Dosage: 200 MG
     Route: 048
     Dates: start: 20100614
  2. CELLCEPT [Suspect]
     Indication: RENAL TRANSPLANT
     Dosage: 2 G
     Route: 048
     Dates: start: 20100611
  3. CORTANCYL [Suspect]
     Indication: RENAL TRANSPLANT
     Dosage: 7 MG
     Route: 048
     Dates: start: 20100612
  4. BACTRIM [Concomitant]
     Dosage: UNK
     Route: 048
     Dates: start: 20100615
  5. ESOMEPRAZOLE [Concomitant]
     Dosage: 80 MG
     Route: 048
     Dates: start: 20100619
  6. ROVALCYTE [Concomitant]
     Dosage: 450 MG
     Dates: start: 20100706, end: 20100707
  7. ROVALCYTE [Concomitant]
     Dosage: NO TREATMENT
     Route: 048
     Dates: start: 20100708, end: 20100809
  8. ROVALCYTE [Concomitant]
     Dosage: 450 MG
     Route: 048
     Dates: start: 20100810, end: 20100823
  9. ARANESP [Concomitant]
     Dosage: UNK
     Route: 042
     Dates: start: 20100708
  10. CYMEVAN [Concomitant]
     Dosage: UNK
     Dates: start: 20100727, end: 20100809

REACTIONS (3)
  - CITROBACTER INFECTION [None]
  - FEBRILE NEUTROPENIA [None]
  - URINARY TRACT INFECTION [None]
